FAERS Safety Report 23387545 (Version 1)
Quarter: 2024Q1

REPORT INFORMATION
  Report Type: Spontaneous
  Country: PL (occurrence: PL)
  Receive Date: 20240110
  Receipt Date: 20240110
  Transmission Date: 20240410
  Serious: Yes (Other)
  Sender: FDA-Public Use
  Company Number: None

PATIENT
  Age: 73 Year
  Sex: Female
  Weight: 80 kg

DRUGS (5)
  1. IMRALDI [Suspect]
     Active Substance: ADALIMUMAB
     Indication: Rheumatoid arthritis
     Dosage: 3 DOSAGES
     Route: 058
     Dates: start: 20190607, end: 20190705
  2. AMLODIPINE BESYLATE\INDAPAMIDE\PERINDOPRIL ARGININE [Concomitant]
     Active Substance: AMLODIPINE BESYLATE\INDAPAMIDE\PERINDOPRIL ARGININE
     Indication: Essential hypertension
     Route: 048
     Dates: start: 2015
  3. CAPTOPRIL [Concomitant]
     Active Substance: CAPTOPRIL
     Indication: Essential hypertension
     Route: 048
     Dates: start: 2015
  4. METOPROLOL TARTRATE [Concomitant]
     Active Substance: METOPROLOL TARTRATE
     Indication: Essential hypertension
     Dosage: BETALOC ZK
     Route: 048
     Dates: start: 2015
  5. PRADAXA [Concomitant]
     Active Substance: DABIGATRAN ETEXILATE MESYLATE
     Indication: Thrombophlebitis
     Route: 048
     Dates: start: 2015

REACTIONS (5)
  - Arthralgia [Recovering/Resolving]
  - Blood pressure increased [Recovering/Resolving]
  - Dyspnoea [Recovering/Resolving]
  - Hyperhidrosis [Recovering/Resolving]
  - Chest pain [Recovering/Resolving]

NARRATIVE: CASE EVENT DATE: 20190719
